FAERS Safety Report 4356984-3 (Version None)
Quarter: 2004Q2

REPORT INFORMATION
  Report Type: 
  Country: None (occurrence: None)
  Receive Date: 20040507
  Receipt Date: 20040416
  Transmission Date: 20050107
  Serious: Yes (Death, Hospitalization, Other)
  Sender: FDA-Public Use
  Company Number: USA040362967

PATIENT
  Age: 64 Year
  Sex: Female

DRUGS (3)
  1. FORTEO [Suspect]
     Indication: FRACTURE
     Dosage: 20 UG/1 DAY
     Dates: start: 20040121, end: 20040130
  2. FORTEO [Suspect]
     Indication: OSTEOPOROSIS
     Dosage: 20 UG/1 DAY
     Dates: start: 20040121, end: 20040130
  3. PROCRIT (ERYTHROPOIETIN) [Concomitant]

REACTIONS (5)
  - BACK PAIN [None]
  - DEHYDRATION [None]
  - HEPATIC ENCEPHALOPATHY [None]
  - PAROTITIS [None]
  - STAPHYLOCOCCAL SEPSIS [None]
